FAERS Safety Report 8387139-3 (Version None)
Quarter: 2012Q2

REPORT INFORMATION
  Report Type: 
  Country: None (occurrence: None)
  Receive Date: 20120523
  Receipt Date: 20120523
  Transmission Date: 20120825
  Serious: Yes (Other)
  Sender: FDA-Public Use
  Company Number: None

PATIENT
  Age: 73 Year
  Sex: Female
  Weight: 70.3075 kg

DRUGS (1)
  1. RECLAST [Suspect]
     Indication: OSTEOPOROSIS
     Dosage: 5G YEARLY IV
     Route: 042

REACTIONS (4)
  - MYALGIA [None]
  - MUSCULAR WEAKNESS [None]
  - NAUSEA [None]
  - MALAISE [None]
